FAERS Safety Report 10056749 (Version 2)
Quarter: 2014Q2

REPORT INFORMATION
  Report Type: Spontaneous
  Country: TW (occurrence: TW)
  Receive Date: 20140403
  Receipt Date: 20140617
  Transmission Date: 20141212
  Serious: Yes (Hospitalization)
  Sender: FDA-Public Use
  Company Number: PHHY2014TW036419

PATIENT
  Age: 51 Year
  Sex: Male

DRUGS (4)
  1. ATENOLOL [Suspect]
     Indication: HYPERTENSION
  2. CAPTOPRIL [Suspect]
     Indication: HYPERTENSION
  3. AMLODIPINE [Suspect]
     Indication: HYPERTENSION
  4. LICORICE [Concomitant]
     Indication: ISCHAEMIC HEART DISEASE PROPHYLAXIS

REACTIONS (1)
  - Transient ischaemic attack [Recovered/Resolved]
